FAERS Safety Report 7099662-2 (Version None)
Quarter: 2010Q4

REPORT INFORMATION
  Report Type: 
  Country: None (occurrence: None)
  Receive Date: 20101112
  Receipt Date: 20101109
  Transmission Date: 20110411
  Serious: Yes (Death, Hospitalization, Congenital Anomaly, Other)
  Sender: FDA-Public Use
  Company Number: US-PFIZER INC-2010128177

PATIENT
  Sex: Female
  Weight: 2.9 kg

DRUGS (1)
  1. ZOLOFT [Suspect]
     Dosage: UNK
     Route: 064

REACTIONS (15)
  - ANOMALOUS PULMONARY VENOUS CONNECTION [None]
  - ATRIAL SEPTAL DEFECT [None]
  - CONGENITAL PULMONARY VALVE ATRESIA [None]
  - COR TRIATRIATUM [None]
  - DILATATION VENTRICULAR [None]
  - DRUG EXPOSURE DURING PREGNANCY [None]
  - FAILURE TO THRIVE [None]
  - HAEMOLYTIC ANAEMIA [None]
  - HEART DISEASE CONGENITAL [None]
  - PULMONARY HYPERTENSION [None]
  - PULMONARY VALVE DISEASE [None]
  - PULMONARY VENO-OCCLUSIVE DISEASE [None]
  - RECTAL PROLAPSE [None]
  - RESPIRATORY DISTRESS [None]
  - TRICUSPID VALVE DISEASE [None]
